FAERS Safety Report 7967554-X (Version None)
Quarter: 2011Q4

REPORT INFORMATION
  Report Type: 
  Country: None (occurrence: None)
  Receive Date: 20111207
  Receipt Date: 20111128
  Transmission Date: 20120403
  Serious: Yes (Hospitalization)
  Sender: FDA-Public Use
  Company Number: 2011ST000322

PATIENT
  Age: 7 Year
  Sex: Female
  Weight: 39.6 kg

DRUGS (4)
  1. ONCASPAR [Suspect]
     Indication: ACUTE LYMPHOCYTIC LEUKAEMIA
     Dosage: 2950 IU, X1, IV
     Route: 042
     Dates: start: 20110920, end: 20110920
  2. VINCRISTINE [Concomitant]
  3. PENTAMIDINE [Concomitant]
  4. CALCIUM CARBONATE [Concomitant]

REACTIONS (4)
  - PARAESTHESIA [None]
  - INFUSION RELATED REACTION [None]
  - VOMITING [None]
  - EYE SWELLING [None]
